FAERS Safety Report 15619405 (Version 1)
Quarter: 2018Q4

REPORT INFORMATION
  Report Type: Report from Study
  Country: DE (occurrence: DE)
  Receive Date: 20181115
  Receipt Date: 20181115
  Transmission Date: 20190205
  Serious: Yes (Hospitalization)
  Sender: FDA-Public Use
  Company Number: DE-ACCORD-091975

PATIENT
  Sex: Male

DRUGS (4)
  1. TOCILIZUMAB. [Suspect]
     Active Substance: TOCILIZUMAB
     Dosage: 684-713 MG
     Route: 042
     Dates: start: 201112
  2. TOCILIZUMAB. [Suspect]
     Active Substance: TOCILIZUMAB
     Indication: RHEUMATOID ARTHRITIS
     Dosage: DAILY DOSE: 162 MG MILLGRAM(S) EVERY WEEKS
     Route: 058
     Dates: end: 201609
  3. LORATADINE. [Concomitant]
     Active Substance: LORATADINE
     Route: 065
  4. METHOTREXATE. [Suspect]
     Active Substance: METHOTREXATE
     Indication: PRODUCT USED FOR UNKNOWN INDICATION
     Dosage: DAILY DOSE: 7.5 MG MILLGRAM(S) EVERY WEEKS
     Route: 065
     Dates: start: 201610

REACTIONS (1)
  - Prostatitis [Not Recovered/Not Resolved]

NARRATIVE: CASE EVENT DATE: 20160926
